FAERS Safety Report 26126457 (Version 1)
Quarter: 2025Q4

REPORT INFORMATION
  Report Type: Spontaneous
  Country: US (occurrence: US)
  Receive Date: 20251205
  Receipt Date: 20251205
  Transmission Date: 20260118
  Serious: No
  Sender: BAYER HEALTHCARE LLC
  Company Number: US-BAYER-2025A160412

PATIENT
  Age: 20 Year
  Sex: Male

DRUGS (1)
  1. CHILDREN CLARITIN ALLERGY [Suspect]
     Active Substance: LORATADINE
     Indication: Product use in unapproved indication
     Dosage: UNK
     Route: 048
     Dates: start: 20251126, end: 20251127

REACTIONS (2)
  - Retching [Recovering/Resolving]
  - Product use complaint [None]

NARRATIVE: CASE EVENT DATE: 20251126
